FAERS Safety Report 11343293 (Version 1)
Quarter: 2015Q3

REPORT INFORMATION
  Report Type: Spontaneous
  Country: US (occurrence: US)
  Receive Date: 20150806
  Receipt Date: 20150806
  Transmission Date: 20151125
  Serious: Yes (Hospitalization)
  Sender: FDA-Public Use
  Company Number: US-SUN PHARMACEUTICAL INDUSTRIES LTD-2015SUN01763

PATIENT
  Age: 56 Year
  Sex: Male

DRUGS (3)
  1. OXALIPLATIN. [Suspect]
     Active Substance: OXALIPLATIN
     Indication: COLON CANCER STAGE III
     Dosage: FIRST DOSE OF FOLFOX6 CHEMOTHERAPY
     Route: 065
  2. 5-FLUOROURACIL [Suspect]
     Active Substance: FLUOROURACIL
     Indication: COLON CANCER STAGE III
     Dosage: FIRST DOSE OF FOLFOX6 CHEMOTHERAPY
     Route: 065
  3. LEUCOVORIN. [Suspect]
     Active Substance: LEUCOVORIN
     Indication: COLON CANCER STAGE III
     Dosage: FIRST DOSE OF FOLFOX6 CHEMOTHERAPY
     Route: 065

REACTIONS (4)
  - Toxic leukoencephalopathy [Recovering/Resolving]
  - Respiratory failure [Recovering/Resolving]
  - Cardiomyopathy [Recovered/Resolved]
  - Acute kidney injury [Recovered/Resolved]
